FAERS Safety Report 12529721 (Version 3)
Quarter: 2016Q3

REPORT INFORMATION
  Report Type: Report from Study
  Country: FR (occurrence: FR)
  Receive Date: 20160706
  Receipt Date: 20160727
  Transmission Date: 20161109
  Serious: Yes (Hospitalization)
  Sender: FDA-Public Use
  Company Number: FR-ROCHE-1784759

PATIENT
  Age: 57 Year

DRUGS (6)
  1. TRASTUZUMAB EMTANSINE [Suspect]
     Active Substance: ADO-TRASTUZUMAB EMTANSINE
     Indication: HER-2 POSITIVE BREAST CANCER
     Dosage: LAST DOSE PRIOR TO EVENT WAS ON 16/JUN/2016.
     Route: 042
     Dates: start: 20160304
  2. PERTUZUMAB [Suspect]
     Active Substance: PERTUZUMAB
     Indication: HER-2 POSITIVE BREAST CANCER
     Dosage: LOADING DOSE?CYCLE 1 840 MG, OTHER CYCLES 420 MG.?LAST DOSE PRIOR TO SAE 04/FEB/2016
     Route: 042
     Dates: start: 20150710, end: 20150710
  3. PERTUZUMAB [Suspect]
     Active Substance: PERTUZUMAB
     Dosage: MAINTENANCE DOSE?LAST DOSE PRIOR TO SAE 04/FEB/2016
     Route: 042
     Dates: start: 20150731
  4. TRASTUZUMAB EMTANSINE [Suspect]
     Active Substance: ADO-TRASTUZUMAB EMTANSINE
     Dosage: RESTARTED
     Route: 042
     Dates: start: 20160707
  5. TRASTUZUMAB [Suspect]
     Active Substance: TRASTUZUMAB
     Indication: HER-2 POSITIVE BREAST CANCER
     Dosage: LOADING DOSE?CYCLE 1 600 MG, OTHER CYCLES 450 MG.?LAST DOSE PRIOR TO SAE ON 04/FEB/2016
     Route: 042
     Dates: start: 20150710, end: 20150710
  6. TRASTUZUMAB [Suspect]
     Active Substance: TRASTUZUMAB
     Dosage: MAINTENANCE DOSE?LAST DOSE PRIOR TO SAE ON 04/FEB/2016
     Route: 042
     Dates: start: 20150731

REACTIONS (1)
  - Vertigo [Recovered/Resolved]

NARRATIVE: CASE EVENT DATE: 20160624
